FAERS Safety Report 4476753-3 (Version None)
Quarter: 2004Q4

REPORT INFORMATION
  Report Type: 
  Country: None (occurrence: None)
  Receive Date: 20041015
  Receipt Date: 20041010
  Transmission Date: 20050328
  Serious: Yes (Hospitalization)
  Sender: FDA-Public Use
  Company Number: DL2004249

PATIENT
  Age: 26 Year
  Sex: Female

DRUGS (2)
  1. MIFEPRISTONE TABLETS, 200 MG (DANCO LABS) [Suspect]
     Indication: ABORTION INDUCED
     Dosage: 200 MG, ORAL
     Route: 048
     Dates: start: 20040629
  2. MISOPROSTOL [Suspect]
     Dosage: 800 MCG,  VAGINAL
     Route: 067
     Dates: start: 20040630

REACTIONS (4)
  - ABDOMINAL PAIN [None]
  - ABORTION INDUCED COMPLETE COMPLICATED [None]
  - BODY TEMPERATURE INCREASED [None]
  - CHILLS [None]
